FAERS Safety Report 5165145-X (Version None)
Quarter: 2006Q4

REPORT INFORMATION
  Report Type: 
  Country: None (occurrence: None)
  Receive Date: 20061127
  Receipt Date: 20030718
  Transmission Date: 20070319
  Serious: Yes (Death)
  Sender: FDA-Public Use
  Company Number: 2006BH014026

PATIENT
  Sex: Female

DRUGS (1)
  1. STERILE WATER FOR INJECTION IN PLASTIC CONTAINER [Suspect]
     Indication: HYPERNATRAEMIA
     Dosage: 550 ML; CONTINUOUS; IV
     Route: 042

REACTIONS (8)
  - DRUG ADMINISTRATION ERROR [None]
  - DRUG DISPENSING ERROR [None]
  - HAEMOLYSIS [None]
  - INCORRECT ROUTE OF DRUG ADMINISTRATION [None]
  - INFUSION RELATED REACTION [None]
  - MEDICATION ERROR [None]
  - OLIGURIA [None]
  - RENAL FAILURE [None]
